FAERS Safety Report 5646186-2 (Version None)
Quarter: 2008Q1

REPORT INFORMATION
  Report Type: 
  Country: None (occurrence: None)
  Receive Date: 20080227
  Receipt Date: 20080221
  Transmission Date: 20080703
  Serious: Yes (Death, Other)
  Sender: FDA-Public Use
  Company Number: 056-21880-08021327

PATIENT
  Sex: Male

DRUGS (2)
  1. REVLIMID [Suspect]
     Indication: MULTIPLE MYELOMA
     Dosage: 25 MG, 1 IN 1 D, ORAL
     Route: 048
     Dates: start: 20070901
  2. DEXAMETHASONE TAB [Concomitant]

REACTIONS (3)
  - ACUTE RESPIRATORY FAILURE [None]
  - BRONCHITIS [None]
  - PULMONARY EMBOLISM [None]
